FAERS Safety Report 20452111 (Version 2)
Quarter: 2022Q2

REPORT INFORMATION
  Report Type: Report from Study
  Country: US (occurrence: US)
  Receive Date: 20220209
  Receipt Date: 20220418
  Transmission Date: 20220721
  Serious: Yes (Other)
  Sender: FDA-Public Use
  Company Number: US-BIOGEN-2022BI01095206

PATIENT
  Sex: Female
  Weight: 83.46 kg

DRUGS (5)
  1. TYSABRI [Suspect]
     Active Substance: NATALIZUMAB
     Indication: Multiple sclerosis
     Dosage: INFUSED OVER 1 HOUR
     Route: 042
  2. IBUPROFEN [Concomitant]
     Active Substance: IBUPROFEN
     Indication: Product used for unknown indication
     Dosage: 1 TABLET WITH FOOD OR MILK AS NEEDED ORALLY THREE TIMES A DAY
     Route: 048
  3. MELATONIN [Concomitant]
     Active Substance: MELATONIN
     Indication: Product used for unknown indication
     Dosage: 1 TABLET AT BEDTIME AS NEEDED WITH FOOD ORALLY ONCE A DAY
     Route: 048
  4. PROZAC [Concomitant]
     Active Substance: FLUOXETINE HYDROCHLORIDE
     Indication: Product used for unknown indication
     Dosage: 1 CAPSULE ORALLY TWICE A DAY
     Route: 048
  5. ACETAMINOPHEN\HYDROCODONE [Concomitant]
     Active Substance: ACETAMINOPHEN\HYDROCODONE
     Indication: Product used for unknown indication
     Dosage: 10-325 MG TABLET, 1 TABLET AS NEEDED ORALLY EVERY 6 HOURS
     Route: 048

REACTIONS (5)
  - Aortic aneurysm [Unknown]
  - Bicuspid aortic valve [Unknown]
  - Cardiac disorder [Unknown]
  - Fatigue [Unknown]
  - Pain in extremity [Unknown]
